FAERS Safety Report 7569002-0 (Version None)
Quarter: 2011Q2

REPORT INFORMATION
  Report Type: 
  Country: None (occurrence: None)
  Receive Date: 20110623
  Receipt Date: 20110621
  Transmission Date: 20111010
  Serious: Yes (Life-Threatening, Hospitalization)
  Sender: FDA-Public Use
  Company Number: NO-PFIZER INC-2011095464

PATIENT
  Age: 62 Year
  Sex: Male

DRUGS (12)
  1. MYCOSTATIN [Concomitant]
  2. ZYRTEC [Concomitant]
     Dosage: 10 MG, 1X/DAY
  3. SUTENT [Suspect]
     Indication: ADRENOCORTICAL CARCINOMA
     Dosage: 50 MG, 1X/DAY
     Dates: start: 20110415, end: 20110502
  4. SAROTEX [Concomitant]
     Dosage: 25 MG, 1X/DAY
  5. LAXOBERAL [Concomitant]
  6. PARACETAMOL [Concomitant]
     Dosage: 1 G, 4X/DAY
  7. LYSODREN [Concomitant]
     Dosage: 500 MG, 3X/DAY
  8. LYRICA [Concomitant]
     Dosage: 300 MG, 2X/DAY
  9. PENICILLIN V POTASSIUM [Concomitant]
  10. PANTOPRAZOLE [Concomitant]
     Dosage: 40 MG, 1X/DAY
  11. CIPROFLOXACIN [Concomitant]
  12. CORTISONE [Concomitant]
     Dosage: 25 MG, 1X/DAY

REACTIONS (3)
  - VENTRICULAR FIBRILLATION [None]
  - CARDIAC ARREST [None]
  - ELECTROCARDIOGRAM QT PROLONGED [None]
